FAERS Safety Report 24709844 (Version 1)
Quarter: 2024Q4

REPORT INFORMATION
  Report Type: Spontaneous
  Country: US (occurrence: US)
  Receive Date: 20241209
  Receipt Date: 20241209
  Transmission Date: 20250114
  Serious: Yes (Hospitalization, Other)
  Sender: HIKMA
  Company Number: US-MLMSERVICE-20241118-PI262373-00082-1

PATIENT
  Age: 49 Year
  Sex: Female

DRUGS (8)
  1. BRENTUXIMAB [Suspect]
     Active Substance: BRENTUXIMAB
     Indication: Hodgkin^s disease
     Dosage: 2 DOSES OF BRENTUXIMAB 3 WEEKS APART
     Route: 065
     Dates: start: 2019, end: 2019
  2. BRENTUXIMAB [Suspect]
     Active Substance: BRENTUXIMAB
     Indication: Metastases to lymph nodes
  3. CARBOPLATIN [Suspect]
     Active Substance: CARBOPLATIN
     Indication: Metastases to lymph nodes
     Dosage: 3 CYCLES
     Route: 065
     Dates: start: 2018, end: 201812
  4. CARBOPLATIN [Suspect]
     Active Substance: CARBOPLATIN
     Indication: Hodgkin^s disease
  5. ETOPOSIDE [Suspect]
     Active Substance: ETOPOSIDE
     Indication: Hodgkin^s disease
     Dosage: 3 CYCLES
     Route: 065
     Dates: start: 2018, end: 201812
  6. ETOPOSIDE [Suspect]
     Active Substance: ETOPOSIDE
     Indication: Metastases to lymph nodes
  7. IFOSFAMIDE [Suspect]
     Active Substance: IFOSFAMIDE
     Indication: Hodgkin^s disease
     Dosage: 3 CYCLES
     Route: 065
     Dates: start: 2018, end: 201812
  8. IFOSFAMIDE [Suspect]
     Active Substance: IFOSFAMIDE
     Indication: Metastases to lymph nodes

REACTIONS (6)
  - Myelosuppression [Unknown]
  - Pancytopenia [Unknown]
  - Acute kidney injury [Recovering/Resolving]
  - Renal tubular injury [Recovering/Resolving]
  - Renal arteriosclerosis [Recovering/Resolving]
  - Tubulointerstitial nephritis [Recovering/Resolving]

NARRATIVE: CASE EVENT DATE: 20180101
